FAERS Safety Report 9071722 (Version 2)
Quarter: 2013Q1

REPORT INFORMATION
  Report Type: Spontaneous
  Country: US (occurrence: US)
  Receive Date: 20130129
  Receipt Date: 20130201
  Transmission Date: 20140127
  Serious: Yes (Other)
  Sender: FDA-Public Use
  Company Number: US-RB-049050-13

PATIENT
  Age: 8 Year
  Sex: Male
  Weight: 46 kg

DRUGS (4)
  1. MUCINEX CHILDREN^S MULTI SYMPTOM COLD AND FEVER BERRY BLAST [Suspect]
     Indication: PRODUCT USED FOR UNKNOWN INDICATION
     Dosage: ONLY ONE DOSE
     Route: 048
     Dates: start: 20130116
  2. MUCINEX CHILDREN^S MULTI SYMPTOM COLD  AND FEVER BERRY BLAST [Suspect]
  3. MUCINEX CHILDRENS MULTI SYMPTOM COLD VERY BERRY [Suspect]
  4. CHILDRENS MUCINEX MULTI-SYMPTOM COLD AND FEVER [Suspect]

REACTIONS (14)
  - Hallucination [Recovered/Resolved]
  - Palpitations [Recovered/Resolved]
  - Chills [Recovered/Resolved]
  - Tremor [Recovered/Resolved]
  - Screaming [Recovered/Resolved]
  - Visual impairment [Recovered/Resolved]
  - Psychomotor hyperactivity [Recovered/Resolved]
  - Dizziness [Recovered/Resolved]
  - Unevaluable event [Recovered/Resolved]
  - Fear [Unknown]
  - Sinusitis [Unknown]
  - Feeling abnormal [Unknown]
  - Somnolence [Not Recovered/Not Resolved]
  - Sleep disorder [Unknown]
